FAERS Safety Report 21264289 (Version 1)
Quarter: 2022Q3

REPORT INFORMATION
  Report Type: Spontaneous
  Country: US (occurrence: US)
  Receive Date: 20220829
  Receipt Date: 20220829
  Transmission Date: 20221027
  Serious: No
  Sender: FDA-Public Use
  Company Number: US-TEVA-2022-US-2050431

PATIENT
  Age: 65 Year
  Sex: Female

DRUGS (2)
  1. BUPRENORPHINE [Suspect]
     Active Substance: BUPRENORPHINE
     Indication: Product used for unknown indication
     Dosage: 10MCG/HR, 21-MAY
     Route: 065
  2. BUPRENORPHINE [Suspect]
     Active Substance: BUPRENORPHINE
     Indication: Pain
     Dosage: 10MCG/HR, 21-MAY
     Route: 065

REACTIONS (6)
  - Product adhesion issue [Unknown]
  - Adverse drug reaction [Unknown]
  - Application site rash [Unknown]
  - Application site irritation [Unknown]
  - Application site erythema [Recovered/Resolved]
  - Application site mass [Recovered/Resolved]
